FAERS Safety Report 9367232 (Version 1)
Quarter: 2013Q2

REPORT INFORMATION
  Report Type: Spontaneous
  Country: US (occurrence: US)
  Receive Date: 20130625
  Receipt Date: 20130625
  Transmission Date: 20140414
  Serious: No
  Sender: FDA-Public Use
  Company Number: US-ASTELLAS-2012US005780

PATIENT
  Age: 67 Year
  Sex: Female

DRUGS (1)
  1. VESICARE [Suspect]
     Indication: HYPERTONIC BLADDER
     Dosage: 5 MG, UNKNOWN/D
     Route: 048
     Dates: start: 20120605

REACTIONS (6)
  - Ageusia [Unknown]
  - Visual acuity reduced [Not Recovered/Not Resolved]
  - Appetite disorder [Unknown]
  - Dry mouth [Recovering/Resolving]
  - Nausea [Not Recovered/Not Resolved]
  - Somnolence [Recovering/Resolving]
